FAERS Safety Report 8960026 (Version 1)
Quarter: 2012Q4

REPORT INFORMATION
  Report Type: 
  Country: US (occurrence: US)
  Receive Date: 20121212
  Receipt Date: 20121212
  Transmission Date: 20130627
  Serious: Yes (Hospitalization)
  Sender: FDA-Public Use
  Company Number: US-BAYER-2012-129356

PATIENT
  Age: 33 Year
  Sex: Female

DRUGS (17)
  1. YAZ [Suspect]
  2. YASMIN [Suspect]
  3. OCELLA [Suspect]
  4. ZARAH [Suspect]
  5. RESTORIL [Concomitant]
  6. ULTRAM [Concomitant]
  7. XYZAL [Concomitant]
     Dosage: 5 mg, UNK
  8. NUCYNTA [Concomitant]
     Dosage: 50 mg, UNK
  9. PREDNISONE [Concomitant]
     Dosage: 20 mg, UNK
  10. NSAID^S [Concomitant]
  11. DEXILANT [Concomitant]
  12. SUDOGEST [Concomitant]
  13. SUDOGEST [Concomitant]
     Dosage: 30 mg, UNK
  14. LEVOCETIRIZINE [Concomitant]
     Dosage: 5 mg, UNK
  15. CARISOPRODOL [Concomitant]
     Dosage: 350 mg, UNK
  16. CLONAZEPAM [Concomitant]
     Dosage: 0.5 mg, UNK
  17. SOMA [Concomitant]

REACTIONS (1)
  - Deep vein thrombosis [None]
